FAERS Safety Report 22523475 (Version 1)
Quarter: 2023Q2

REPORT INFORMATION
  Report Type: Spontaneous
  Country: CN (occurrence: CN)
  Receive Date: 20230606
  Receipt Date: 20230606
  Transmission Date: 20230722
  Serious: Yes (Life-Threatening, Other)
  Sender: FDA-Public Use
  Company Number: None

PATIENT
  Age: 42 Year
  Sex: Female
  Weight: 84 kg

DRUGS (2)
  1. INSULIN ASPART [Suspect]
     Active Substance: INSULIN ASPART
     Indication: Type 2 diabetes mellitus
     Dosage: 16 IU, BID
     Route: 058
     Dates: start: 20230515
  2. INSULIN ASPART [Suspect]
     Active Substance: INSULIN ASPART
     Indication: Diabetic nephropathy
     Dosage: DOSE REDUCED
     Route: 058

REACTIONS (4)
  - Somnolence [Recovering/Resolving]
  - Palpitations [Recovering/Resolving]
  - Suffocation feeling [Recovering/Resolving]
  - Hypoglycaemic unconsciousness [Recovering/Resolving]

NARRATIVE: CASE EVENT DATE: 20230515
